FAERS Safety Report 8519459-3 (Version None)
Quarter: 2012Q3

REPORT INFORMATION
  Report Type: 
  Country: None (occurrence: None)
  Receive Date: 20120718
  Receipt Date: 20120711
  Transmission Date: 20120928
  Serious: No
  Sender: FDA-Public Use
  Company Number: US-PFIZER INC-2012167961

PATIENT
  Sex: Female
  Weight: 68.027 kg

DRUGS (2)
  1. TOVIAZ [Suspect]
     Dosage: 8 MG DAILY
     Dates: start: 20120101, end: 20120711
  2. TOVIAZ [Suspect]
     Indication: HYPERTONIC BLADDER
     Dosage: 4 MG DAILY
     Dates: start: 20120601, end: 20120101

REACTIONS (1)
  - VISION BLURRED [None]
